FAERS Safety Report 6211688-7 (Version None)
Quarter: 2009Q2

REPORT INFORMATION
  Report Type: 
  Country: None (occurrence: None)
  Receive Date: 20090602
  Receipt Date: 20090428
  Transmission Date: 20091009
  Serious: Yes (Other)
  Sender: FDA-Public Use
  Company Number: B0573213A

PATIENT

DRUGS (7)
  1. MELPHALAN [Suspect]
     Indication: NON-HODGKIN'S LYMPHOMA
     Dosage: 140MGM2 PER DAY
     Route: 042
  2. CARMUSTINE [Suspect]
     Indication: NON-HODGKIN'S LYMPHOMA
     Dosage: 300MGM2 PER DAY
     Route: 042
  3. ETOPOSIDE [Suspect]
     Indication: NON-HODGKIN'S LYMPHOMA
     Dosage: 100MGM2 PER DAY
     Route: 042
  4. CYTARABINE [Suspect]
     Indication: NON-HODGKIN'S LYMPHOMA
     Dosage: 100MGM2 PER DAY
     Route: 042
  5. RITUXIMAB [Suspect]
     Indication: NON-HODGKIN'S LYMPHOMA
     Dosage: 250MGM2 PER DAY
  6. IBRITUMOMAB TIUXETAN [Suspect]
     Indication: NON-HODGKIN'S LYMPHOMA
     Dosage: 5MCI PER DAY
  7. NEUPOGEN [Concomitant]
     Dosage: 5UGK PER DAY
     Route: 058

REACTIONS (2)
  - DRUG TOXICITY [None]
  - HEPATOTOXICITY [None]
